FAERS Safety Report 22607185 (Version 1)
Quarter: 2023Q2

REPORT INFORMATION
  Report Type: Report from Study
  Country: DE (occurrence: DE)
  Receive Date: 20230615
  Receipt Date: 20230615
  Transmission Date: 20230721
  Serious: Yes (Death, Congenital Anomaly)
  Sender: FDA-Public Use
  Company Number: DE-ABBVIE-5289680

PATIENT

DRUGS (1)
  1. SKYRIZI [Suspect]
     Active Substance: RISANKIZUMAB-RZAA
     Indication: Maternal exposure timing unspecified
     Route: 064

REACTIONS (4)
  - Death [Fatal]
  - Gastric disorder [Unknown]
  - Foetal exposure during pregnancy [Unknown]
  - Foetal malformation [Unknown]

NARRATIVE: CASE EVENT DATE: 20230411
